FAERS Safety Report 10961410 (Version 1)
Quarter: 2015Q1

REPORT INFORMATION
  Report Type: Spontaneous
  Country: JP (occurrence: None)
  Receive Date: 20150325
  Receipt Date: 20150325
  Transmission Date: 20150721
  Serious: Yes (Other)
  Sender: FDA-Public Use
  Company Number: FK201501377

PATIENT
  Age: 55 Year
  Sex: Female

DRUGS (4)
  1. INTERFERON B (INTERFERON BETA) (INTERFERON BETA) [Suspect]
     Active Substance: INTERFERON BETA
     Indication: PINEAL PARENCHYMAL NEOPLASM MALIGNANT
  2. VINCRISTINE (VINCRISTINE) [Suspect]
     Active Substance: VINCRISTINE
     Indication: PINEAL PARENCHYMAL NEOPLASM MALIGNANT
     Dosage: ON DAY 8 AND DAY 15
  3. CARBOPLATIN (MANUFACTURER UNKNOWN) (CARBOPLATIN) (CARBOPLATIN) [Suspect]
     Active Substance: CARBOPLATIN
     Indication: PINEAL PARENCHYMAL NEOPLASM MALIGNANT
     Dosage: 6 COURSES
  4. NIMUSTINE (NIMUSTINE)  (NIMUSTINE) [Suspect]
     Active Substance: NIMUSTINE
     Indication: PINEAL PARENCHYMAL NEOPLASM MALIGNANT
     Dosage: 6 COURSES

REACTIONS (3)
  - Growth hormone deficiency [None]
  - Cognitive disorder [None]
  - White matter lesion [None]
